FAERS Safety Report 8017773-1 (Version None)
Quarter: 2012Q1

REPORT INFORMATION
  Report Type: 
  Country: None (occurrence: None)
  Receive Date: 20120103
  Receipt Date: 20111230
  Transmission Date: 20120608
  Serious: Yes (Hospitalization)
  Sender: FDA-Public Use
  Company Number: US-AMGEN-USASP2011064262

PATIENT
  Age: 58 Year
  Sex: Male

DRUGS (1)
  1. ENBREL [Suspect]
     Indication: PSORIASIS
     Dosage: 50 MG, 2 TIMES/WK
     Route: 058
     Dates: start: 20030924, end: 20111027

REACTIONS (6)
  - NECROSIS [None]
  - ARTHRALGIA [None]
  - HAEMATOMA INFECTION [None]
  - SWELLING [None]
  - LIMB INJURY [None]
  - FALL [None]
